FAERS Safety Report 6581101-9 (Version None)
Quarter: 2010Q1

REPORT INFORMATION
  Report Type: 
  Country: None (occurrence: None)
  Receive Date: 20100215
  Receipt Date: 20100204
  Transmission Date: 20100710
  Serious: Yes (Other)
  Sender: FDA-Public Use
  Company Number: PHHY2010CA07032

PATIENT
  Sex: Female

DRUGS (3)
  1. ACLASTA [Suspect]
     Indication: OSTEOPOROSIS
     Dosage: 5 MG, UNK
     Dates: start: 20100124
  2. NORVASC [Concomitant]
     Dosage: 5 MG, UNK
  3. TYLENOL-500 [Concomitant]

REACTIONS (2)
  - OCULAR HYPERAEMIA [None]
  - PAIN [None]
